FAERS Safety Report 18086955 (Version 6)
Quarter: 2020Q4

REPORT INFORMATION
  Report Type: Spontaneous
  Country: US (occurrence: US)
  Receive Date: 20200729
  Receipt Date: 20201014
  Transmission Date: 20210113
  Serious: No
  Sender: FDA-Public Use
  Company Number: US-PFIZER INC-2020272645

PATIENT
  Age: 15 Year
  Sex: Female
  Weight: 87.54 kg

DRUGS (2)
  1. GENOTROPIN [Suspect]
     Active Substance: SOMATROPIN
     Dosage: 1 MG, DAILY
     Dates: start: 20200712
  2. GENOTROPIN [Suspect]
     Active Substance: SOMATROPIN
     Indication: BRAIN NEOPLASM MALIGNANT
     Dosage: 1 MG
     Dates: start: 202006, end: 2020

REACTIONS (9)
  - Injection site pain [Recovered/Resolved]
  - Product use in unapproved indication [Unknown]
  - Device leakage [Unknown]
  - Drug dose omission by device [Unknown]
  - Poor quality device used [Unknown]
  - Device use error [Unknown]
  - Off label use [Unknown]
  - Device breakage [Unknown]
  - Device issue [Unknown]

NARRATIVE: CASE EVENT DATE: 2020
